FAERS Safety Report 4291474-8 (Version None)
Quarter: 2004Q1

REPORT INFORMATION
  Report Type: 
  Country: None (occurrence: None)
  Receive Date: 20040210
  Receipt Date: 20040210
  Transmission Date: 20041129
  Serious: Yes (Hospitalization)
  Sender: FDA-Public Use
  Company Number: None

PATIENT
  Sex: Male

DRUGS (1)
  1. PERGOLIDE MESYLATE [Suspect]
     Indication: RESTLESS LEGS SYNDROME
     Dosage: 1 MG PO TID
     Route: 048
     Dates: start: 20030801, end: 20040101

REACTIONS (1)
  - NARCOLEPSY [None]
